FAERS Safety Report 14161295 (Version 1)
Quarter: 2017Q4

REPORT INFORMATION
  Report Type: Spontaneous
  Country: US (occurrence: None)
  Receive Date: 20171104
  Receipt Date: 20171104
  Transmission Date: 20180321
  Serious: Yes (Hospitalization)
  Sender: FDA-Public Use
  Company Number: None

PATIENT
  Age: 27 Year
  Sex: Female

DRUGS (1)
  1. HARVONI [Suspect]
     Active Substance: LEDIPASVIR\SOFOSBUVIR

REACTIONS (9)
  - Vomiting [None]
  - Ovarian cyst [None]
  - Nausea [None]
  - Depression [None]
  - Chest pain [None]
  - Urinary tract infection [None]
  - Hypersomnia [None]
  - Drug dose omission [None]
  - Fatigue [None]

NARRATIVE: CASE EVENT DATE: 20171104
